FAERS Safety Report 13444681 (Version 1)
Quarter: 2017Q2

REPORT INFORMATION
  Report Type: Spontaneous
  Country: US (occurrence: US)
  Receive Date: 20170414
  Receipt Date: 20170414
  Transmission Date: 20170830
  Serious: No
  Sender: FDA-Public Use
  Company Number: US-ASTRAZENECA-2017SE35568

PATIENT
  Age: 26 Year
  Sex: Male
  Weight: 74.8 kg

DRUGS (8)
  1. SEROQUEL XR [Suspect]
     Active Substance: QUETIAPINE FUMARATE
     Indication: BIPOLAR DISORDER
     Route: 048
     Dates: start: 2007
  2. METOPROLOL. [Suspect]
     Active Substance: METOPROLOL
     Indication: HEART RATE IRREGULAR
     Route: 048
     Dates: start: 2016
  3. DEPAKOTE [Concomitant]
     Active Substance: DIVALPROEX SODIUM
     Indication: ABNORMAL BEHAVIOUR
     Route: 048
     Dates: start: 2007
  4. ATORVASTATIN [Concomitant]
     Active Substance: ATORVASTATIN
     Indication: BLOOD CHOLESTEROL ABNORMAL
     Dosage: DAILY
     Route: 048
     Dates: start: 2016
  5. DEPAKOTE [Concomitant]
     Active Substance: DIVALPROEX SODIUM
     Indication: ABNORMAL BEHAVIOUR
     Route: 048
     Dates: start: 2007
  6. METFORMIN [Concomitant]
     Active Substance: METFORMIN HYDROCHLORIDE
     Indication: DIABETES MELLITUS
     Route: 048
     Dates: start: 2016
  7. SINGULAIR [Concomitant]
     Active Substance: MONTELUKAST SODIUM
     Indication: ASTHMA
     Dosage: GENERIC, AT NIGHT
     Route: 048
     Dates: start: 2000
  8. FISH OIL [Concomitant]
     Active Substance: FISH OIL
     Indication: BLOOD CHOLESTEROL ABNORMAL
     Dosage: UNKNOWN
     Route: 048
     Dates: start: 2016

REACTIONS (14)
  - Diabetes mellitus [Not Recovered/Not Resolved]
  - Influenza [Unknown]
  - Cardiac disorder [Not Recovered/Not Resolved]
  - Violence-related symptom [Recovered/Resolved]
  - Asthma [Unknown]
  - Thinking abnormal [Recovered/Resolved]
  - Off label use [Not Recovered/Not Resolved]
  - Mood swings [Unknown]
  - Logorrhoea [Unknown]
  - Agitation [Recovered/Resolved]
  - Intentional product misuse [Unknown]
  - Drug dose omission [Unknown]
  - Hypertension [Not Recovered/Not Resolved]
  - Feeling abnormal [Unknown]

NARRATIVE: CASE EVENT DATE: 2016
